FAERS Safety Report 19006402 (Version 1)
Quarter: 2021Q1

REPORT INFORMATION
  Report Type: Spontaneous
  Country: BR (occurrence: BR)
  Receive Date: 20210315
  Receipt Date: 20210315
  Transmission Date: 20210420
  Serious: Yes (Hospitalization, Other)
  Sender: FDA-Public Use
  Company Number: BR-SA-2021SA072527

PATIENT
  Sex: Female
  Weight: 100 kg

DRUGS (1)
  1. CLEXANE [Suspect]
     Active Substance: ENOXAPARIN SODIUM
     Dosage: 40 MG, QD
     Route: 065

REACTIONS (2)
  - Premature separation of placenta [Recovered/Resolved]
  - Exposure during pregnancy [Recovered/Resolved]
